FAERS Safety Report 9015035 (Version 1)
Quarter: 2013Q1

REPORT INFORMATION
  Report Type: Spontaneous
  Country: US (occurrence: None)
  Receive Date: 20130109
  Receipt Date: 20130109
  Transmission Date: 20140127
  Serious: Yes (Life-Threatening, Hospitalization)
  Sender: FDA-Public Use
  Company Number: None

PATIENT
  Sex: Female

DRUGS (1)
  1. VANCOMYCIN [Suspect]
     Indication: DECUBITUS ULCER
     Dosage: 1000MG
     Route: 042
     Dates: start: 20101231

REACTIONS (6)
  - Nausea [None]
  - Retching [None]
  - Unresponsive to stimuli [None]
  - Infusion related reaction [None]
  - Pulse absent [None]
  - Respiratory arrest [None]
